FAERS Safety Report 7522195-3 (Version None)
Quarter: 2011Q2

REPORT INFORMATION
  Report Type: 
  Country: None (occurrence: None)
  Receive Date: 20110523
  Receipt Date: 20110512
  Transmission Date: 20111010
  Serious: Yes (Hospitalization, Other)
  Sender: FDA-Public Use
  Company Number: 2011PROUSA00331

PATIENT
  Age: 76 Year
  Sex: Male

DRUGS (5)
  1. PROVENGE [Suspect]
     Indication: PROSTATE CANCER METASTATIC
     Dosage: 250 ML, SINGLE, INTRAVENOUS
     Route: 042
     Dates: start: 20110422, end: 20110422
  2. METOPROLOL TARTRATE [Concomitant]
  3. BYETTA [Concomitant]
  4. LISINOPRIL [Concomitant]
  5. SIMVASTATIN [Concomitant]

REACTIONS (10)
  - HAEMOGLOBIN DECREASED [None]
  - STAPHYLOCOCCAL BACTERAEMIA [None]
  - CONFUSIONAL STATE [None]
  - MALAISE [None]
  - DISORIENTATION [None]
  - CATHETER SITE INFECTION [None]
  - NERVOUSNESS [None]
  - SOMNOLENCE [None]
  - BLOOD PRESSURE SYSTOLIC INCREASED [None]
  - BLOOD PRESSURE DIASTOLIC DECREASED [None]
